FAERS Safety Report 4773294-0 (Version None)
Quarter: 2005Q3

REPORT INFORMATION
  Report Type: 
  Country: None (occurrence: None)
  Receive Date: 20050916
  Receipt Date: 20050901
  Transmission Date: 20060218
  Serious: Yes (Hospitalization)
  Sender: FDA-Public Use
  Company Number: 2005PV001466

PATIENT
  Age: 64 Year
  Sex: Male
  Weight: 95.2554 kg

DRUGS (8)
  1. BYETTA [Suspect]
     Indication: DIABETES MELLITUS NON-INSULIN-DEPENDENT
     Dosage: SEE IMAGE
     Route: 058
     Dates: start: 20050706, end: 20050803
  2. BYETTA [Suspect]
     Indication: DIABETES MELLITUS NON-INSULIN-DEPENDENT
     Dosage: SEE IMAGE
     Route: 058
     Dates: start: 20050809
  3. AMARYL [Concomitant]
  4. AVANDIA [Concomitant]
  5. METFORMIN HCL [Concomitant]
  6. LIPITOR [Concomitant]
  7. DIOVAN [Concomitant]
  8. ACTOS [Concomitant]

REACTIONS (14)
  - ABDOMINAL DISTENSION [None]
  - BENIGN PROSTATIC HYPERPLASIA [None]
  - BLADDER OBSTRUCTION [None]
  - DECREASED APPETITE [None]
  - DIABETES MELLITUS INADEQUATE CONTROL [None]
  - DIABETIC COMPLICATION [None]
  - DYSGEUSIA [None]
  - HAEMATURIA [None]
  - POST PROCEDURAL HAEMORRHAGE [None]
  - PROSTATE CANCER [None]
  - PROSTATE INDURATION [None]
  - RENAL FAILURE [None]
  - URINARY RETENTION [None]
  - URINARY TRACT INFECTION [None]
